FAERS Safety Report 7381402-0 (Version None)
Quarter: 2011Q1

REPORT INFORMATION
  Report Type: 
  Country: None (occurrence: None)
  Receive Date: 20110324
  Receipt Date: 20110324
  Transmission Date: 20110831
  Serious: Yes (Disabling)
  Sender: FDA-Public Use
  Company Number: None

PATIENT
  Sex: Female

DRUGS (2)
  1. GILENYA [Suspect]
     Indication: MULTIPLE SCLEROSIS
     Dosage: QD PO
     Route: 048
     Dates: start: 20110211
  2. GILENYA [Suspect]
     Indication: MULTIPLE SCLEROSIS
     Dosage: QD PO
     Route: 048
     Dates: start: 20110212

REACTIONS (2)
  - DEAFNESS UNILATERAL [None]
  - VERTIGO [None]
